FAERS Safety Report 6786236-3 (Version None)
Quarter: 2010Q2

REPORT INFORMATION
  Report Type: 
  Country: None (occurrence: None)
  Receive Date: 20100623
  Receipt Date: 20100617
  Transmission Date: 20101027
  Serious: Yes (Other)
  Sender: FDA-Public Use
  Company Number: FR-RB-011736-10

PATIENT
  Age: 45 Year
  Sex: Male

DRUGS (1)
  1. SUBUTEX [Suspect]
     Indication: DRUG USE FOR UNKNOWN INDICATION
     Dosage: UNKNOWN DOSING DETAILS
     Route: 042

REACTIONS (4)
  - ABSCESS [None]
  - INCORRECT ROUTE OF DRUG ADMINISTRATION [None]
  - LYMPHOEDEMA [None]
  - SUBSTANCE ABUSE [None]
